FAERS Safety Report 18377299 (Version 1)
Quarter: 2020Q4

REPORT INFORMATION
  Report Type: Spontaneous
  Country: US (occurrence: US)
  Receive Date: 20201013
  Receipt Date: 20201013
  Transmission Date: 20210114
  Serious: No
  Sender: FDA-Public Use
  Company Number: US-TEVA-2020-US-1837106

PATIENT
  Age: 81 Year
  Sex: Female

DRUGS (1)
  1. PROAIR HFA [Suspect]
     Active Substance: ALBUTEROL SULFATE
     Indication: DYSPNOEA
     Route: 065

REACTIONS (5)
  - Nasopharyngitis [Unknown]
  - Productive cough [Unknown]
  - Cough [Unknown]
  - Sneezing [Unknown]
  - Device delivery system issue [Unknown]
